FAERS Safety Report 5211580-0 (Version None)
Quarter: 2007Q1

REPORT INFORMATION
  Report Type: 
  Country: None (occurrence: None)
  Receive Date: 20070116
  Receipt Date: 20070116
  Transmission Date: 20070707
  Serious: Yes (Other)
  Sender: FDA-Public Use
  Company Number: None

PATIENT
  Age: 78 Year
  Sex: Female
  Weight: 46.4 kg

DRUGS (11)
  1. WARFARIN SODIUM [Suspect]
     Indication: ANTICOAGULANT THERAPY
     Dosage: 62.5MG TOTAL WEEKLY DOSE  PO
     Route: 048
  2. AVELOX [Suspect]
     Indication: PNEUMONIA
     Dosage: 400MG  DAILY  PO
     Route: 048
     Dates: start: 20061118, end: 20061121
  3. AVELOX [Suspect]
     Indication: PNEUMONIA
     Dosage: 400MG  DAILY  PO
     Route: 048
     Dates: start: 20050401
  4. NORVASC [Concomitant]
  5. FOSAMAX [Concomitant]
  6. PULMICORT [Concomitant]
  7. BUSPAR [Concomitant]
  8. PROCRIT [Concomitant]
  9. IRON SUCROSE [Concomitant]
  10. SINGULAIR [Concomitant]
  11. CENTRUM SILVER [Concomitant]

REACTIONS (1)
  - INTERNATIONAL NORMALISED RATIO INCREASED [None]
